APPROVED DRUG PRODUCT: ALBUTEROL SULFATE
Active Ingredient: ALBUTEROL SULFATE
Strength: EQ 4MG BASE
Dosage Form/Route: TABLET;ORAL
Application: A072780 | Product #001
Applicant: TEVA PHARMACEUTICALS USA INC
Approved: Jun 25, 1993 | RLD: No | RS: No | Type: DISCN